FAERS Safety Report 10690724 (Version 1)
Quarter: 2015Q1

REPORT INFORMATION
  Report Type: Spontaneous
  Country: JP (occurrence: JP)
  Receive Date: 20150105
  Receipt Date: 20150105
  Transmission Date: 20150720
  Serious: Yes (Other)
  Sender: FDA-Public Use
  Company Number: JP-TEVA-532186ISR

PATIENT
  Age: 62 Year
  Sex: Female

DRUGS (6)
  1. DEXART [Concomitant]
     Active Substance: DEXAMETHASONE SODIUM PHOSPHATE
     Indication: OESOPHAGEAL CARCINOMA
     Dosage: 6.6 MILLIGRAM DAILY;
     Route: 042
     Dates: start: 20140620, end: 20140620
  2. FILGRASTIM BS INJ. NK [Suspect]
     Active Substance: FILGRASTIM
     Indication: NEUTROPENIA
     Dosage: 75 MICROGRAM/M2 DAILY;
     Route: 058
     Dates: start: 20140624, end: 20140624
  3. THYRADIN-S [Concomitant]
     Active Substance: LEVOTHYROXINE
     Indication: HYPOTHYROIDISM
     Dosage: 1 DOSAGE FORMS DAILY; ONGOING
     Route: 048
     Dates: start: 201308
  4. DOCETAXEL. [Concomitant]
     Active Substance: DOCETAXEL
     Indication: OESOPHAGEAL CARCINOMA
     Dosage: 90 MILLIGRAM DAILY;
     Route: 042
     Dates: start: 20140620, end: 20140620
  5. FILGRASTIM BS INJ. NK [Suspect]
     Active Substance: FILGRASTIM
     Dosage: 150 MICROGRAM/M2 DAILY;
     Route: 058
     Dates: start: 20140625, end: 20140626
  6. FILGRASTIM BS INJ. NK [Suspect]
     Active Substance: FILGRASTIM
     Dosage: 75 MICROGRAM/M2 DAILY;
     Route: 058
     Dates: start: 20140627, end: 20140630

REACTIONS (3)
  - Vomiting [Recovering/Resolving]
  - Nausea [Recovering/Resolving]
  - Back pain [Recovering/Resolving]

NARRATIVE: CASE EVENT DATE: 20140626
